FAERS Safety Report 16600586 (Version 1)
Quarter: 2019Q3

REPORT INFORMATION
  Report Type: Spontaneous
  Country: DE (occurrence: DE)
  Receive Date: 20190719
  Receipt Date: 20190719
  Transmission Date: 20191004
  Serious: Yes (Other)
  Sender: FDA-Public Use
  Company Number: DE-BAUSCH-BL-2019-020398

PATIENT
  Age: 33 Year
  Sex: Male

DRUGS (7)
  1. TACROLIMUS. [Concomitant]
     Active Substance: TACROLIMUS
     Dosage: REDUCED DOSE
     Dates: start: 2017
  2. SOFOSBUVIR [Suspect]
     Active Substance: SOFOSBUVIR
     Indication: HEPATITIS E
     Route: 065
     Dates: start: 201611, end: 2017
  3. TACROLIMUS. [Concomitant]
     Active Substance: TACROLIMUS
     Indication: IMMUNOSUPPRESSANT DRUG THERAPY
     Dosage: 5-8 MG/DAY
     Dates: start: 201403, end: 2016
  4. TACROLIMUS. [Concomitant]
     Active Substance: TACROLIMUS
     Dates: start: 2016, end: 2017
  5. RIBAVIRIN. [Suspect]
     Active Substance: RIBAVIRIN
     Indication: HEPATITIS E
     Dosage: 600-800 MG PER DAY
     Route: 065
     Dates: start: 201502
  6. RIBAVIRIN. [Suspect]
     Active Substance: RIBAVIRIN
     Dosage: MONOTHERAPY CONTINUED
     Route: 065
     Dates: start: 2017
  7. SIROLIMUS. [Concomitant]
     Active Substance: SIROLIMUS
     Indication: IMMUNOSUPPRESSANT DRUG THERAPY
     Dates: start: 201403

REACTIONS (3)
  - Viral mutation identified [Not Recovered/Not Resolved]
  - Pathogen resistance [Not Recovered/Not Resolved]
  - Treatment failure [Unknown]

NARRATIVE: CASE EVENT DATE: 201503
